FAERS Safety Report 17433651 (Version 3)
Quarter: 2022Q3

REPORT INFORMATION
  Report Type: Spontaneous
  Country: US (occurrence: None)
  Receive Date: 20200219
  Receipt Date: 20220809
  Transmission Date: 20221027
  Serious: Yes (Death, Other)
  Sender: FDA-Public Use
  Company Number: 2020SE21386

PATIENT
  Age: 15111 Day
  Sex: Female
  Weight: 68 kg

DRUGS (70)
  1. NEXIUM [Suspect]
     Active Substance: ESOMEPRAZOLE MAGNESIUM
     Indication: Gastrooesophageal reflux disease
     Route: 048
     Dates: start: 201201, end: 201803
  2. NEXIUM [Suspect]
     Active Substance: ESOMEPRAZOLE MAGNESIUM
     Indication: Gastrooesophageal reflux disease
     Dosage: 40.0MG UNKNOWN
     Route: 048
     Dates: start: 2012, end: 2015
  3. NEXIUM [Suspect]
     Active Substance: ESOMEPRAZOLE MAGNESIUM
     Indication: Gastrooesophageal reflux disease
     Dosage: 40.0MG UNKNOWN
     Route: 048
     Dates: start: 20120201
  4. NEXIUM [Suspect]
     Active Substance: ESOMEPRAZOLE MAGNESIUM
     Indication: Gastrooesophageal reflux disease
     Dosage: GENERIC40.0MG UNKNOWN
     Route: 065
     Dates: start: 20150228
  5. NEXIUM [Suspect]
     Active Substance: ESOMEPRAZOLE MAGNESIUM
     Indication: Gastrooesophageal reflux disease
     Dosage: GENERIC30.0MG UNKNOWN
     Route: 065
     Dates: start: 20170703
  6. NEXIUM 24HR [Suspect]
     Active Substance: ESOMEPRAZOLE MAGNESIUM
     Indication: Gastrooesophageal reflux disease
     Route: 048
     Dates: start: 201201, end: 201803
  7. NEXIUM 24HR [Suspect]
     Active Substance: ESOMEPRAZOLE MAGNESIUM
     Indication: Gastrooesophageal reflux disease
     Dosage: 20.0MG UNKNOWN
     Route: 048
     Dates: start: 2015, end: 2018
  8. NEXIUM 24HR [Suspect]
     Active Substance: ESOMEPRAZOLE MAGNESIUM
     Indication: Gastrooesophageal reflux disease
     Dosage: 20.0MG UNKNOWN
     Route: 048
     Dates: start: 20180215
  9. GLIPIZIDE [Concomitant]
     Active Substance: GLIPIZIDE
     Indication: Diabetes mellitus
     Route: 065
     Dates: start: 2012, end: 2018
  10. METFORMIN [Concomitant]
     Active Substance: METFORMIN HYDROCHLORIDE
     Indication: Diabetes mellitus
     Route: 065
     Dates: start: 2017
  11. LIPITOR [Concomitant]
     Active Substance: ATORVASTATIN CALCIUM
     Indication: Blood cholesterol abnormal
     Route: 065
     Dates: start: 2012, end: 2018
  12. IBUPROFEN [Concomitant]
     Active Substance: IBUPROFEN
  13. LEVOTHYROXINE [Concomitant]
     Active Substance: LEVOTHYROXINE
  14. GLIMEPIRIDE [Concomitant]
     Active Substance: GLIMEPIRIDE
  15. OXYCONTIN [Concomitant]
     Active Substance: OXYCODONE HYDROCHLORIDE
  16. CIPROFLOXACIN [Concomitant]
     Active Substance: CIPROFLOXACIN
  17. ACETAMINOPHEN\OXYCODONE HYDROCHLORIDE [Concomitant]
     Active Substance: ACETAMINOPHEN\OXYCODONE HYDROCHLORIDE
  18. LISINOPRIL [Concomitant]
     Active Substance: LISINOPRIL
  19. PROAIR HFA [Concomitant]
     Active Substance: ALBUTEROL SULFATE
  20. AMOXICILLIN [Concomitant]
     Active Substance: AMOXICILLIN
  21. CYCLOBENZAPRINE [Concomitant]
     Active Substance: CYCLOBENZAPRINE
  22. ALPRAZOLAM [Concomitant]
     Active Substance: ALPRAZOLAM
  23. CIPROFLOXACIN [Concomitant]
     Active Substance: CIPROFLOXACIN
  24. NICOTINE [Concomitant]
     Active Substance: NICOTINE
  25. LEVOFLOXACIN [Concomitant]
     Active Substance: LEVOFLOXACIN
  26. DEXAMETHASONE [Concomitant]
     Active Substance: DEXAMETHASONE
  27. OXYMORPHONE [Concomitant]
     Active Substance: OXYMORPHONE
  28. VITAMIN D2 [Concomitant]
     Active Substance: ERGOCALCIFEROL
  29. HYDROCHLOROTHIAZIDE [Concomitant]
     Active Substance: HYDROCHLOROTHIAZIDE
  30. LOSARTAN [Concomitant]
     Active Substance: LOSARTAN
  31. AMLODIPINE [Concomitant]
     Active Substance: AMLODIPINE BESYLATE
  32. FERROUS SULFATE [Concomitant]
     Active Substance: FERROUS SULFATE
  33. CIPRODEX [Concomitant]
     Active Substance: CIPROFLOXACIN HYDROCHLORIDE\DEXAMETHASONE
  34. ALBUTEROL [Concomitant]
     Active Substance: ALBUTEROL
  35. NAPROXEN [Concomitant]
     Active Substance: NAPROXEN
  36. PHENAZOPYRIDINE [Concomitant]
     Active Substance: PHENAZOPYRIDINE
  37. NITROFURANTOIN [Concomitant]
     Active Substance: NITROFURANTOIN
  38. FLUTICASONE [Concomitant]
     Active Substance: FLUTICASONE
  39. POLYETHYLENE GLYCOL [Concomitant]
     Active Substance: POLYETHYLENE GLYCOL
  40. FOSINOPRIL [Concomitant]
     Active Substance: FOSINOPRIL
  41. BENZONATATE [Concomitant]
     Active Substance: BENZONATATE
  42. MEDROXYPROGESTERONE [Concomitant]
     Active Substance: MEDROXYPROGESTERONE
  43. HYDRALAZINE [Concomitant]
     Active Substance: HYDRALAZINE HYDROCHLORIDE
  44. LEVEMIR [Concomitant]
     Active Substance: INSULIN DETEMIR
  45. NIFEDIPINE [Concomitant]
     Active Substance: NIFEDIPINE
  46. LABETALOL [Concomitant]
     Active Substance: LABETALOL\LABETALOL HYDROCHLORIDE
  47. MAGNESIUM OXIDE [Concomitant]
     Active Substance: MAGNESIUM OXIDE
  48. CLONIDINE [Concomitant]
     Active Substance: CLONIDINE
  49. FOLIC ACID [Concomitant]
     Active Substance: FOLIC ACID
  50. HYDROCHLOROTHIAZIDE\LISINOPRIL [Concomitant]
     Active Substance: HYDROCHLOROTHIAZIDE\LISINOPRIL
  51. CARISOPRODOL [Concomitant]
     Active Substance: CARISOPRODOL
  52. LORAZEPAM [Concomitant]
     Active Substance: LORAZEPAM
  53. BRIMONIDINE [Concomitant]
     Active Substance: BRIMONIDINE TARTRATE
  54. NOVOLOG [Concomitant]
     Active Substance: INSULIN ASPART
  55. RENO [Concomitant]
  56. LATANOPROST [Concomitant]
     Active Substance: LATANOPROST
  57. GABAPENTIN [Concomitant]
     Active Substance: GABAPENTIN
  58. VITAMIN D3 [Concomitant]
     Active Substance: CHOLECALCIFEROL
  59. IRON [Concomitant]
     Active Substance: IRON
  60. METOLAZONE [Concomitant]
     Active Substance: METOLAZONE
  61. CELEXA [Concomitant]
     Active Substance: CITALOPRAM HYDROBROMIDE
  62. MAGNESIUM [Concomitant]
     Active Substance: MAGNESIUM
  63. ONDANSETRON [Concomitant]
     Active Substance: ONDANSETRON
  64. ACETAMINOPHEN [Concomitant]
     Active Substance: ACETAMINOPHEN
  65. FUROSEMIDE [Concomitant]
     Active Substance: FUROSEMIDE
  66. DULOXETINE [Concomitant]
     Active Substance: DULOXETINE
  67. PRILOSEC [Concomitant]
     Active Substance: OMEPRAZOLE MAGNESIUM
  68. ZEMPLAR [Concomitant]
     Active Substance: PARICALCITOL
  69. ZINACEF [Concomitant]
     Active Substance: CEFUROXIME SODIUM
  70. ASPIRIN [Concomitant]
     Active Substance: ASPIRIN

REACTIONS (6)
  - Death [Fatal]
  - Chronic kidney disease [Not Recovered/Not Resolved]
  - Nephrogenic anaemia [Unknown]
  - Acute kidney injury [Unknown]
  - End stage renal disease [Unknown]
  - Renal failure [Unknown]

NARRATIVE: CASE EVENT DATE: 20140907
